FAERS Safety Report 8600193-6 (Version None)
Quarter: 2012Q3

REPORT INFORMATION
  Report Type: 
  Country: None (occurrence: None)
  Receive Date: 20120817
  Receipt Date: 20120808
  Transmission Date: 20120928
  Serious: Yes (Hospitalization)
  Sender: FDA-Public Use
  Company Number: DE-BIOGENIDEC-2012BI030593

PATIENT
  Age: 45 Year
  Sex: Female

DRUGS (1)
  1. AVONEX [Suspect]
     Indication: MULTIPLE SCLEROSIS
     Route: 030
     Dates: start: 20020101, end: 20111107

REACTIONS (6)
  - ATRIAL SEPTAL DEFECT [None]
  - ABDOMINAL WALL ABSCESS [None]
  - CEREBROVASCULAR ACCIDENT [None]
  - PERIPHERAL EMBOLISM [None]
  - INCONTINENCE [None]
  - DEEP VEIN THROMBOSIS [None]
